FAERS Safety Report 24396354 (Version 2)
Quarter: 2025Q2

REPORT INFORMATION
  Report Type: Spontaneous
  Country: GB (occurrence: GB)
  Receive Date: 20241004
  Receipt Date: 20250417
  Transmission Date: 20250717
  Serious: Yes (Disabling, Other)
  Sender: RANBAXY
  Company Number: GB-MHRA-MED-202409201203388880-KMYJL

PATIENT
  Age: 30 Year
  Sex: Female
  Weight: 79 kg

DRUGS (1)
  1. SERTRALINE [Suspect]
     Active Substance: SERTRALINE HYDROCHLORIDE
     Indication: Anxiety
     Route: 065
     Dates: start: 20200801, end: 20221001

REACTIONS (1)
  - Anorgasmia [Not Recovered/Not Resolved]

NARRATIVE: CASE EVENT DATE: 20200801
